FAERS Safety Report 8396002-3 (Version None)
Quarter: 2012Q2

REPORT INFORMATION
  Report Type: 
  Country: None (occurrence: None)
  Receive Date: 20120530
  Receipt Date: 20120522
  Transmission Date: 20120825
  Serious: Yes (Other)
  Sender: FDA-Public Use
  Company Number: US-JNJFOC-20120518439

PATIENT
  Sex: Female
  Weight: 103.42 kg

DRUGS (4)
  1. SYNTHROID [Concomitant]
     Indication: THYROID DISORDER
     Route: 065
  2. INVEGA SUSTENNA [Suspect]
     Indication: BIPOLAR DISORDER
     Route: 030
     Dates: start: 20120101
  3. FISH OIL [Concomitant]
     Indication: BLOOD CHOLESTEROL
     Route: 065
  4. COGENTIN [Concomitant]
     Indication: ADVERSE DRUG REACTION
     Route: 065

REACTIONS (6)
  - MENSTRUATION DELAYED [None]
  - WEIGHT INCREASED [None]
  - INCORRECT DOSE ADMINISTERED [None]
  - HYPERPROLACTINAEMIA [None]
  - SYSTEMIC LUPUS ERYTHEMATOSUS [None]
  - THINKING ABNORMAL [None]
